FAERS Safety Report 7835618-7 (Version None)
Quarter: 2011Q4

REPORT INFORMATION
  Report Type: 
  Country: None (occurrence: None)
  Receive Date: 20111024
  Receipt Date: 20111013
  Transmission Date: 20120403
  Serious: Yes (Hospitalization, Other)
  Sender: FDA-Public Use
  Company Number: AU-ASTRAZENECA-2011SE61646

PATIENT
  Age: 950 Month
  Sex: Male

DRUGS (2)
  1. ATACAND [Suspect]
     Indication: HYPERTENSION
     Route: 048
     Dates: start: 20050101
  2. EZETIMIBE [Concomitant]
     Indication: HYPERCHOLESTEROLAEMIA
     Dates: start: 20050101

REACTIONS (10)
  - PRURITUS [None]
  - YELLOW SKIN [None]
  - PYREXIA [None]
  - BILE DUCT CANCER [None]
  - CHOLANGITIS [None]
  - DECREASED APPETITE [None]
  - LETHARGY [None]
  - BILE DUCT OBSTRUCTION [None]
  - OCULAR ICTERUS [None]
  - CHROMATURIA [None]
